FAERS Safety Report 9732512 (Version 1)
Quarter: 2013Q4

REPORT INFORMATION
  Report Type: Spontaneous
  Country: US (occurrence: US)
  Receive Date: 20131204
  Receipt Date: 20131204
  Transmission Date: 20140711
  Serious: Yes (Other)
  Sender: FDA-Public Use
  Company Number: CHPA2013US017702

PATIENT
  Age: 57 Year
  Sex: Female

DRUGS (3)
  1. GAS-X PREVENTION [Suspect]
     Indication: DYSPEPSIA
     Dosage: 1 DF, AT NIGHT
     Route: 048
     Dates: start: 2013
  2. GAS-X PREVENTION [Suspect]
     Indication: OFF LABEL USE
  3. METFORMIN [Suspect]
     Dosage: UNK, UNK

REACTIONS (4)
  - Renal disorder [Unknown]
  - Blood test abnormal [Unknown]
  - Expired drug administered [Unknown]
  - Therapeutic response unexpected [Unknown]
